FAERS Safety Report 6494947-2 (Version None)
Quarter: 2009Q4

REPORT INFORMATION
  Report Type: 
  Country: None (occurrence: None)
  Receive Date: 20091214
  Receipt Date: 20091022
  Transmission Date: 20100525
  Serious: No
  Sender: FDA-Public Use
  Company Number: US-BRISTOL-MYERS SQUIBB COMPANY-14585053

PATIENT
  Age: 59 Year
  Sex: Female
  Weight: 82 kg

DRUGS (6)
  1. ABILIFY [Suspect]
     Indication: MAJOR DEPRESSION
     Dosage: RESTARTED -30SEP09
     Route: 048
     Dates: start: 20090101
  2. ABILIFY [Suspect]
     Indication: POST-TRAUMATIC STRESS DISORDER
     Dosage: RESTARTED -30SEP09
     Route: 048
     Dates: start: 20090101
  3. ANTIDEPRESSANT [Suspect]
  4. CYMBALTA [Concomitant]
  5. ANAFRANIL [Concomitant]
  6. KLONOPIN [Concomitant]

REACTIONS (3)
  - DYSPHAGIA [None]
  - MUSCLE RIGIDITY [None]
  - TREMOR [None]
